FAERS Safety Report 5863337-5 (Version None)
Quarter: 2008Q3

REPORT INFORMATION
  Report Type: 
  Country: None (occurrence: None)
  Receive Date: 20080828
  Receipt Date: 20080820
  Transmission Date: 20090109
  Serious: Yes (Disabling, Other)
  Sender: FDA-Public Use
  Company Number: PHHY2008JP00749

PATIENT
  Sex: Female

DRUGS (4)
  1. ZOMETA [Suspect]
     Indication: METASTASES TO BONE
     Dosage: 4 MG, EVERY 4 WEEKS
     Route: 042
     Dates: start: 20060724, end: 20070615
  2. AREDIA [Suspect]
     Indication: METASTASES TO BONE
     Dosage: 90 MG, FOR EVERY 4 WEEKS
     Route: 042
     Dates: start: 20040623, end: 20060619
  3. ANASTROZOLE [Concomitant]
     Indication: METASTASES TO BONE
     Dosage: 1 MG, UNK
     Route: 048
     Dates: start: 20040414, end: 20060121
  4. TASUOMIN [Concomitant]
     Dosage: 20 MG, UNK
     Route: 048
     Dates: start: 20060122

REACTIONS (7)
  - BONE DISORDER [None]
  - HYPOAESTHESIA ORAL [None]
  - JOINT IRRIGATION [None]
  - MASTICATION DISORDER [None]
  - OSTEONECROSIS [None]
  - PAIN IN JAW [None]
  - SWELLING FACE [None]
